FAERS Safety Report 23914361 (Version 4)
Quarter: 2024Q4

REPORT INFORMATION
  Report Type: Report from Study
  Country: CO (occurrence: CO)
  Receive Date: 20240529
  Receipt Date: 20241022
  Transmission Date: 20250114
  Serious: Yes (Hospitalization, Other)
  Sender: TAKEDA
  Company Number: CO-TAKEDA-2024TUS032644

PATIENT
  Age: 68 Year
  Sex: Female
  Weight: 65 kg

DRUGS (2)
  1. VEDOLIZUMAB [Suspect]
     Active Substance: VEDOLIZUMAB
     Indication: Colitis ulcerative
     Dosage: 300 MILLIGRAM
     Route: 042
     Dates: start: 20210119
  2. HYDROXYCHLOROQUINE [Concomitant]
     Active Substance: HYDROXYCHLOROQUINE
     Dosage: UNK

REACTIONS (26)
  - Arrhythmia [Unknown]
  - Pleural effusion [Unknown]
  - Cardiomegaly [Unknown]
  - Thrombosis [Unknown]
  - Illness [Unknown]
  - Chills [Unknown]
  - Headache [Unknown]
  - Discouragement [Unknown]
  - Anxiety [Unknown]
  - Gastritis [Unknown]
  - Malaise [Unknown]
  - Abdominal pain lower [Unknown]
  - Anaemia [Unknown]
  - Poor quality sleep [Unknown]
  - Dehydration [Unknown]
  - Platelet count decreased [Unknown]
  - Stress [Unknown]
  - Decreased appetite [Unknown]
  - Fatigue [Unknown]
  - Weight increased [Unknown]
  - Pain [Recovered/Resolved]
  - Poor venous access [Recovered/Resolved]
  - Emotional distress [Unknown]
  - Paraesthesia [Unknown]
  - Pain in extremity [Unknown]
  - Nausea [Unknown]

NARRATIVE: CASE EVENT DATE: 20240401
